FAERS Safety Report 22596197 (Version 1)
Quarter: 2023Q2

REPORT INFORMATION
  Report Type: Spontaneous
  Country: US (occurrence: US)
  Receive Date: 20230613
  Receipt Date: 20230613
  Transmission Date: 20230722
  Serious: No
  Sender: FDA-Public Use
  Company Number: 2022FOS000802

PATIENT
  Sex: Male
  Weight: 76.644 kg

DRUGS (1)
  1. TAVALISSE [Suspect]
     Active Substance: FOSTAMATINIB
     Indication: Immune thrombocytopenia
     Dosage: 100 MG, QD, 3 DAYS A WEEK
     Route: 048
     Dates: start: 20210910

REACTIONS (6)
  - Cognitive disorder [Unknown]
  - Laboratory test [Unknown]
  - Fall [Unknown]
  - Skin abrasion [Unknown]
  - Contusion [Unknown]
  - Inappropriate schedule of product administration [Unknown]
